FAERS Safety Report 24568305 (Version 1)
Quarter: 2024Q4

REPORT INFORMATION
  Report Type: Spontaneous
  Country: US (occurrence: US)
  Receive Date: 20241031
  Receipt Date: 20241031
  Transmission Date: 20250114
  Serious: Yes (Other)
  Sender: ABBVIE
  Company Number: US-ABBVIE-5983392

PATIENT
  Sex: Female

DRUGS (1)
  1. RESTASIS [Suspect]
     Active Substance: CYCLOSPORINE
     Indication: Dry eye
     Dosage: OPHTHALMIC EMULSION 0.05%?FORM STRENGTH: 0.05 MILLIGRAM/MILLILITERS?START DATE TEXT: 15 YEARS AGO
     Route: 047

REACTIONS (7)
  - Retinal disorder [Recovered/Resolved]
  - Retinal tear [Recovered/Resolved]
  - Device issue [Not Recovered/Not Resolved]
  - Dry eye [Not Recovered/Not Resolved]
  - Liquid product physical issue [Not Recovered/Not Resolved]
  - Eye pruritus [Not Recovered/Not Resolved]
  - Eye pain [Not Recovered/Not Resolved]
